FAERS Safety Report 5647253-X (Version None)
Quarter: 2008Q1

REPORT INFORMATION
  Report Type: 
  Country: None (occurrence: None)
  Receive Date: 20080303
  Receipt Date: 20080227
  Transmission Date: 20080703
  Serious: Yes (Death)
  Sender: FDA-Public Use
  Company Number: PHEH2008US02240

PATIENT
  Age: 66 Year
  Sex: Male
  Weight: 86.167 kg

DRUGS (3)
  1. SPRYCEL [Concomitant]
  2. ATENOLOL [Concomitant]
  3. EXJADE [Suspect]
     Indication: IRON OVERLOAD
     Dosage: 1500 MG, QD
     Route: 048
     Dates: start: 20071205, end: 20080218

REACTIONS (2)
  - BLOOD CREATININE INCREASED [None]
  - DEATH [None]
